FAERS Safety Report 23342214 (Version 3)
Quarter: 2024Q2

REPORT INFORMATION
  Report Type: Spontaneous
  Country: US (occurrence: US)
  Receive Date: 20231227
  Receipt Date: 20240417
  Transmission Date: 20240715
  Serious: Yes (Other)
  Sender: FDA-Public Use
  Company Number: US-PFIZER INC-PV202300205305

PATIENT
  Age: 82 Year
  Sex: Male

DRUGS (1)
  1. VYNDAMAX [Suspect]
     Active Substance: TAFAMIDIS
     Indication: Acquired ATTR amyloidosis
     Dosage: 61 MG

REACTIONS (6)
  - Brain injury [Unknown]
  - Headache [Unknown]
  - Accident [Unknown]
  - Memory impairment [Unknown]
  - Mental impairment [Unknown]
  - Amnesia [Not Recovered/Not Resolved]
